FAERS Safety Report 19418565 (Version 1)
Quarter: 2021Q2

REPORT INFORMATION
  Report Type: Report from Study
  Country: CA (occurrence: CA)
  Receive Date: 20210615
  Receipt Date: 20210615
  Transmission Date: 20210717
  Serious: Yes (Other)
  Sender: FDA-Public Use
  Company Number: CA-BAYER-2021-156724

PATIENT
  Sex: Female

DRUGS (8)
  1. ATROVENT [Suspect]
     Active Substance: IPRATROPIUM BROMIDE
  2. TORADOL [Suspect]
     Active Substance: KETOROLAC TROMETHAMINE
  3. FLOVENT [Suspect]
     Active Substance: FLUTICASONE PROPIONATE
  4. QUETIAPINE. [Suspect]
     Active Substance: QUETIAPINE
  5. SALBUTAMOL SULFATE [Suspect]
     Active Substance: ALBUTEROL SULFATE
  6. PREDNISONE. [Suspect]
     Active Substance: PREDNISONE
  7. OLODATEROL HYDROCHLORIDE;TIOTROPIUM BROMIDE [Suspect]
     Active Substance: OLODATEROL HYDROCHLORIDE\TIOTROPIUM BROMIDE MONOHYDRATE
  8. CIPROFLOXACIN. [Suspect]
     Active Substance: CIPROFLOXACIN

REACTIONS (8)
  - Asthma [None]
  - Sleep disorder due to a general medical condition [None]
  - Dyspnoea [None]
  - Loss of personal independence in daily activities [None]
  - Therapeutic product effect incomplete [None]
  - Multiple allergies [None]
  - Osteoporosis [None]
  - Wheezing [None]
